FAERS Safety Report 11860793 (Version 2)
Quarter: 2015Q4

REPORT INFORMATION
  Report Type: Report from Study
  Country: IT (occurrence: IT)
  Receive Date: 20151222
  Receipt Date: 20151224
  Transmission Date: 20160305
  Serious: Yes (Death)
  Sender: FDA-Public Use
  Company Number: PHHO2015IT021132

PATIENT
  Age: 45 Year
  Sex: Male

DRUGS (2)
  1. LDK378 [Suspect]
     Active Substance: CERITINIB
     Indication: NON-SMALL CELL LUNG CANCER
     Dosage: 450 MG, QD
     Route: 048
     Dates: start: 20140422, end: 20140622
  2. AUY922 [Suspect]
     Active Substance: AUY922
     Indication: NON-SMALL CELL LUNG CANCER
     Dosage: 40 MG/M2, QW
     Route: 058
     Dates: start: 20140422, end: 20140616

REACTIONS (2)
  - Non-small cell lung cancer [Fatal]
  - Malignant neoplasm progression [Fatal]

NARRATIVE: CASE EVENT DATE: 20140610
